FAERS Safety Report 9698581 (Version 1)
Quarter: 2013Q4

REPORT INFORMATION
  Report Type: Spontaneous
  Country: GB (occurrence: GB)
  Receive Date: 20131120
  Receipt Date: 20131120
  Transmission Date: 20140711
  Serious: Yes (Other)
  Sender: FDA-Public Use
  Company Number: GB-GLAXOSMITHKLINE-B0942248A

PATIENT
  Age: 79 Year
  Sex: Male

DRUGS (6)
  1. SERETIDE (50MCG/500MCG) [Suspect]
     Indication: PRODUCT USED FOR UNKNOWN INDICATION
     Dosage: 1PUFF TWICE PER DAY
     Route: 055
     Dates: start: 20130813
  2. NICORANDIL [Concomitant]
  3. CANDESARTAN [Concomitant]
  4. SPIRIVA [Concomitant]
  5. ATENOLOL [Concomitant]
  6. SIMVASTATIN [Concomitant]

REACTIONS (2)
  - Candida infection [Not Recovered/Not Resolved]
  - Product taste abnormal [Not Recovered/Not Resolved]
